FAERS Safety Report 15451879 (Version 1)
Quarter: 2018Q4

REPORT INFORMATION
  Report Type: Spontaneous
  Country: US (occurrence: US)
  Receive Date: 20181001
  Receipt Date: 20181001
  Transmission Date: 20190204
  Serious: No
  Sender: FDA-Public Use
  Company Number: US-GLAXOSMITHKLINE-US2018172502

PATIENT
  Sex: Male

DRUGS (1)
  1. NICORETTE FRESH MINT [Suspect]
     Active Substance: NICOTINE
     Indication: PRODUCT USED FOR UNKNOWN INDICATION
     Dosage: 2 MG, UNK,50-80 PCS A DAY.

REACTIONS (2)
  - Nicotine dependence [Unknown]
  - Overdose [Unknown]
